FAERS Safety Report 19405101 (Version 1)
Quarter: 2021Q2

REPORT INFORMATION
  Report Type: Spontaneous
  Country: DE (occurrence: DE)
  Receive Date: 20210611
  Receipt Date: 20210611
  Transmission Date: 20210717
  Serious: Yes (Hospitalization)
  Sender: FDA-Public Use
  Company Number: DE-TEVA-2021-DE-1920324

PATIENT
  Age: 65 Year
  Sex: Male

DRUGS (10)
  1. ATORVASTATIN [Concomitant]
     Active Substance: ATORVASTATIN
     Dosage: 20 MILLIGRAM DAILY; 0?0?1?0
     Route: 048
  2. AMLODIPIN/OLMESARTAN [Suspect]
     Active Substance: AMLODIPINE\OLMESARTAN
     Dosage: 5 | 25 MG, PAUSED SINCE TODAY, 1DF
     Route: 048
  3. XIPAMID [Suspect]
     Active Substance: XIPAMIDE
     Dosage: 20 MG, PAUSED SINCE TODAY
     Route: 048
  4. PANTOPRAZOL [Concomitant]
     Active Substance: PANTOPRAZOLE SODIUM
     Dosage: 40 MILLIGRAM DAILY; 0?0?1?0
     Route: 048
  5. SEMAGLUTID [Concomitant]
     Dosage: 0.5 MG, WEEKLY
     Route: 058
  6. METFORMIN [Concomitant]
     Active Substance: METFORMIN HYDROCHLORIDE
     Dosage: 2000 MILLIGRAM DAILY; 1?0?1?0
     Route: 048
  7. IBUPROFEN. [Suspect]
     Active Substance: IBUPROFEN
     Dosage: 800 MG, 4 TO 5 TIMES A DAY
     Route: 048
  8. MAGNESIUM [Concomitant]
     Active Substance: MAGNESIUM
     Dosage: IF NECESSARY
     Route: 048
  9. INSULIN GLULISIN [Concomitant]
     Active Substance: INSULIN GLULISINE
     Dosage: 10?8?8?0
     Route: 058
  10. GABAPENTIN. [Concomitant]
     Active Substance: GABAPENTIN
     Dosage: 1800 MILLIGRAM DAILY; 1?1?1?0
     Route: 048

REACTIONS (3)
  - Pyrexia [Unknown]
  - Fatigue [Unknown]
  - Hypotension [Unknown]
